FAERS Safety Report 15240021 (Version 2)
Quarter: 2018Q3

REPORT INFORMATION
  Report Type: Spontaneous
  Country: US (occurrence: US)
  Receive Date: 20180803
  Receipt Date: 20180928
  Transmission Date: 20181010
  Serious: Yes (Hospitalization)
  Sender: FDA-Public Use
  Company Number: US-ACTELION-A-NJ2018-176824

PATIENT
  Age: 76 Year
  Sex: Female

DRUGS (5)
  1. XARELTO [Concomitant]
     Active Substance: RIVAROXABAN
  2. LYRICA [Concomitant]
     Active Substance: PREGABALIN
  3. TRACLEER [Suspect]
     Active Substance: BOSENTAN
     Indication: PULMONARY HYPERTENSION
     Dosage: 125 MG, BID
     Route: 048
  4. DILTIAZEM. [Concomitant]
     Active Substance: DILTIAZEM
  5. MULTAQ [Concomitant]
     Active Substance: DRONEDARONE

REACTIONS (3)
  - Peripheral swelling [Unknown]
  - Cardiac failure [Unknown]
  - Fluid retention [Unknown]
